FAERS Safety Report 4489164-1 (Version None)
Quarter: 2004Q4

REPORT INFORMATION
  Report Type: 
  Country: None (occurrence: None)
  Receive Date: 20041029
  Receipt Date: 20040910
  Transmission Date: 20050328
  Serious: Yes (Hospitalization)
  Sender: FDA-Public Use
  Company Number: FR-AMGEN-UK091374

PATIENT
  Sex: Female

DRUGS (2)
  1. NEULASTA [Suspect]
     Indication: CHEMOTHERAPY
     Route: 065
     Dates: start: 20040519
  2. TAXOTERE [Concomitant]
     Route: 042
     Dates: start: 20040602, end: 20040602

REACTIONS (3)
  - INFECTION [None]
  - MASTITIS [None]
  - NEUTROPENIA [None]
